FAERS Safety Report 6313170-5 (Version None)
Quarter: 2009Q3

REPORT INFORMATION
  Report Type: 
  Country: None (occurrence: None)
  Receive Date: 20090814
  Receipt Date: 20090814
  Transmission Date: 20100115
  Serious: Yes (Life-Threatening)
  Sender: FDA-Public Use
  Company Number: None

PATIENT
  Age: 24 Year
  Sex: Female
  Weight: 58.9676 kg

DRUGS (2)
  1. EFFEXOR XR [Suspect]
     Indication: ANXIETY
     Dosage: 75 MG 1 DAY PO
     Route: 048
     Dates: start: 20090808, end: 20090812
  2. EFFEXOR XR [Suspect]
     Indication: BIPOLAR II DISORDER
     Dosage: 75 MG 1 DAY PO
     Route: 048
     Dates: start: 20090808, end: 20090812

REACTIONS (6)
  - ANXIETY [None]
  - DECREASED APPETITE [None]
  - DIZZINESS [None]
  - DRY MOUTH [None]
  - INSOMNIA [None]
  - WEIGHT DECREASED [None]
